FAERS Safety Report 10241923 (Version 2)
Quarter: 2014Q2

REPORT INFORMATION
  Report Type: Report from Study
  Country: JP (occurrence: JP)
  Receive Date: 20140617
  Receipt Date: 20140625
  Transmission Date: 20141212
  Serious: Yes (Death)
  Sender: FDA-Public Use
  Company Number: JP-GLAXOSMITHKLINE-B1004303A

PATIENT
  Age: 94 Year
  Sex: Female
  Weight: 46 kg

DRUGS (14)
  1. REVOLADE [Suspect]
     Indication: IMMUNE THROMBOCYTOPENIC PURPURA
     Dosage: 25MG PER DAY
     Route: 048
     Dates: start: 20140401, end: 20140526
  2. NICORANDIL [Concomitant]
     Route: 048
  3. ASPARTIC ACID [Concomitant]
     Route: 048
  4. ISOSORBIDE DINITRATE [Concomitant]
     Route: 048
  5. CEFZON [Concomitant]
     Route: 048
  6. ADALAT L [Concomitant]
     Route: 048
     Dates: start: 20140403, end: 20140403
  7. GASTER D [Concomitant]
     Route: 048
     Dates: start: 20140411
  8. PREDONINE [Concomitant]
     Indication: IMMUNE THROMBOCYTOPENIC PURPURA
     Dates: start: 20140327, end: 20140415
  9. PREDONINE [Concomitant]
     Dates: start: 20140530, end: 20140609
  10. PREDONINE [Concomitant]
     Indication: IMMUNE THROMBOCYTOPENIC PURPURA
     Route: 048
     Dates: start: 20140416
  11. SOLUMEDROL [Concomitant]
     Indication: IMMUNE THROMBOCYTOPENIC PURPURA
     Dates: end: 20140326
  12. SOLUMEDROL [Concomitant]
     Dates: start: 20140527, end: 20140529
  13. FIRSTCIN [Concomitant]
     Dates: start: 20140527, end: 20140609
  14. APOMORPHINE HYDROCHLORIDE [Concomitant]
     Dates: start: 20140526, end: 20140609

REACTIONS (2)
  - Pneumonia aspiration [Fatal]
  - Hepatic function abnormal [Recovered/Resolved]
